FAERS Safety Report 4332264-7 (Version None)
Quarter: 2004Q1

REPORT INFORMATION
  Report Type: 
  Country: None (occurrence: None)
  Receive Date: 20040331
  Receipt Date: 20040323
  Transmission Date: 20041129
  Serious: Yes (Other)
  Sender: FDA-Public Use
  Company Number: 2004205489GB

PATIENT
  Age: 44 Year
  Sex: Male
  Weight: 69 kg

DRUGS (16)
  1. ZYVOX [Suspect]
     Dosage: 600 MG, BID, IV
     Route: 042
     Dates: start: 20040301, end: 20040303
  2. PREDNISOLONE [Concomitant]
  3. TACROLIMUS (TACROLIMUS) [Concomitant]
  4. VALACYCLOVIR HCL [Concomitant]
  5. LORAZEPAM [Concomitant]
  6. AMLODIPINE [Concomitant]
  7. OMEPRAZOLE [Concomitant]
  8. MEROPENEM (MEROPENEM) [Concomitant]
  9. OCTREOTIDE ACETATE [Concomitant]
  10. TRAMADOL HCL [Concomitant]
  11. ASPIRIN [Concomitant]
  12. MYCOPHENOLATE MOFETIL (MYCOPHENOLATE MOFETIL) [Concomitant]
  13. ENOXAPARIN SODIUM [Concomitant]
  14. ATORVASTATIN (ATORVASTATIN) [Concomitant]
  15. FLUCONAZOLE [Concomitant]
  16. CO-TRIMOXAZOLE [Concomitant]

REACTIONS (1)
  - HEPATITIS ACUTE [None]
